FAERS Safety Report 5969814-0 (Version None)
Quarter: 2008Q4

REPORT INFORMATION
  Report Type: 
  Country: None (occurrence: None)
  Receive Date: 20081126
  Receipt Date: 20080929
  Transmission Date: 20090506
  Serious: No
  Sender: FDA-Public Use
  Company Number: US-ABBOTT-08P-163-0478717-00

PATIENT
  Sex: Female

DRUGS (4)
  1. SIMCOR [Suspect]
     Indication: LOW DENSITY LIPOPROTEIN INCREASED
     Dosage: 500/20 MILLIGRAM AT BEDTIME
     Dates: start: 20080919
  2. AMITRIPTYLINE HCL [Concomitant]
     Indication: INSOMNIA
     Route: 048
  3. LORATADINE [Concomitant]
     Indication: HYPERSENSITIVITY
     Route: 048
  4. OMEPRAZOLE [Concomitant]
     Indication: DYSPEPSIA
     Route: 048

REACTIONS (1)
  - FLUSHING [None]
